FAERS Safety Report 9277808 (Version 3)
Quarter: 2013Q2

REPORT INFORMATION
  Report Type: Report from Study
  Country: CA (occurrence: CA)
  Receive Date: 20130508
  Receipt Date: 20130613
  Transmission Date: 20140414
  Serious: Yes (Other)
  Sender: FDA-Public Use
  Company Number: PHHY2013CA044282

PATIENT
  Sex: Female

DRUGS (2)
  1. ACLASTA [Suspect]
     Indication: OSTEOPOROSIS
     Dosage: UNK
     Route: 042
     Dates: start: 20110522
  2. ACLASTA [Suspect]
     Dosage: UNK
     Route: 042
     Dates: start: 20120524

REACTIONS (2)
  - Calcium deficiency [Unknown]
  - Pain [Unknown]
